FAERS Safety Report 15320777 (Version 1)
Quarter: 2018Q3

REPORT INFORMATION
  Report Type: Spontaneous
  Country: DE (occurrence: DE)
  Receive Date: 20180827
  Receipt Date: 20180827
  Transmission Date: 20181010
  Serious: Yes (Other)
  Sender: FDA-Public Use
  Company Number: PHHY2018DE082188

PATIENT
  Sex: Male

DRUGS (3)
  1. RASILEZ D [Suspect]
     Active Substance: ALISKIREN\HYDROCHLOROTHIAZIDE
     Dosage: UNK
     Route: 065
     Dates: start: 2014
  2. PROVAS [Concomitant]
     Active Substance: VALSARTAN
     Indication: PRODUCT USED FOR UNKNOWN INDICATION
     Route: 065
  3. RASILEZ D [Suspect]
     Active Substance: ALISKIREN\HYDROCHLOROTHIAZIDE
     Indication: PRODUCT USED FOR UNKNOWN INDICATION
     Dosage: UNK
     Route: 065

REACTIONS (2)
  - Hepatic neoplasm [Unknown]
  - Renal neoplasm [Unknown]

NARRATIVE: CASE EVENT DATE: 2014
